FAERS Safety Report 10076430 (Version 1)
Quarter: 2014Q2

REPORT INFORMATION
  Report Type: Report from Study
  Country: IE (occurrence: IE)
  Receive Date: 20140414
  Receipt Date: 20140414
  Transmission Date: 20141212
  Serious: Yes (Hospitalization, Other)
  Sender: FDA-Public Use
  Company Number: IE-ABBVIE-14P-229-1224605-00

PATIENT
  Age: 54 Year
  Sex: Male

DRUGS (1)
  1. HUMIRA [Suspect]
     Indication: CROHN^S DISEASE
     Dosage: HUMIRA ON HOLD SINCE 12-MAR-2014
     Route: 058
     Dates: start: 20101216, end: 20140312

REACTIONS (1)
  - Prostatectomy [Not Recovered/Not Resolved]
